FAERS Safety Report 5913935-5 (Version None)
Quarter: 2008Q4

REPORT INFORMATION
  Report Type: 
  Country: None (occurrence: None)
  Receive Date: 20081009
  Receipt Date: 20081003
  Transmission Date: 20090506
  Serious: Yes (Hospitalization)
  Sender: FDA-Public Use
  Company Number: AU-MERCK-0712AUS00345

PATIENT
  Age: 71 Year
  Sex: Female

DRUGS (7)
  1. FOSAMAX [Suspect]
     Indication: OSTEOPOROSIS
     Route: 048
     Dates: start: 19990101
  2. FOSAMAX [Suspect]
     Route: 048
     Dates: end: 20050505
  3. ATENOLOL [Concomitant]
     Route: 065
  4. AMLODIPINE BESYLATE AND ATORVASTATIN CALCIUM [Concomitant]
     Route: 065
  5. PREDNISONE [Concomitant]
     Route: 065
  6. GOLD [Suspect]
     Indication: ARTHRITIS
     Route: 051
  7. [THERAPY UNSPECIFIED] [Suspect]
     Route: 065
     Dates: end: 20050505

REACTIONS (3)
  - ANAPHYLACTIC SHOCK [None]
  - TOOTH DISORDER [None]
  - TOOTH LOSS [None]
